FAERS Safety Report 5190269-0 (Version None)
Quarter: 2006Q4

REPORT INFORMATION
  Report Type: 
  Country: None (occurrence: None)
  Receive Date: 20061222
  Receipt Date: 20060609
  Transmission Date: 20070319
  Serious: No
  Sender: FDA-Public Use
  Company Number: US-AMGEN-US182443

PATIENT
  Age: 67 Year
  Sex: Male

DRUGS (13)
  1. ARANESP [Suspect]
     Indication: RENAL FAILURE CHRONIC
     Route: 058
     Dates: start: 20051001
  2. GLIPIZIDE [Concomitant]
     Route: 048
  3. NOVOLIN 70/30 [Concomitant]
     Route: 058
  4. LIPITOR [Concomitant]
     Route: 048
  5. MINOXIDIL [Concomitant]
     Route: 065
  6. ALLOPURINOL [Concomitant]
     Route: 048
  7. LASIX [Concomitant]
     Route: 048
  8. ATENOLOL [Concomitant]
     Route: 048
  9. FEOSOL [Concomitant]
     Route: 048
  10. PLAVIX [Concomitant]
     Route: 048
  11. CARDURA [Concomitant]
     Route: 048
  12. CALCITRIOL [Concomitant]
     Route: 065
  13. BENICAR [Concomitant]
     Route: 048

REACTIONS (1)
  - ARTHRITIS [None]
